FAERS Safety Report 8268954-3 (Version None)
Quarter: 2012Q2

REPORT INFORMATION
  Report Type: 
  Country: None (occurrence: None)
  Receive Date: 20120409
  Receipt Date: 20120330
  Transmission Date: 20120825
  Serious: Yes (Death)
  Sender: FDA-Public Use
  Company Number: US-ABBOTT-11P-163-0835339-01

PATIENT
  Sex: Male

DRUGS (8)
  1. CALCIUM CARBONATE [Concomitant]
     Indication: MEDICAL DIET
     Dates: start: 20090903
  2. HUMIRA [Suspect]
     Indication: CROHN'S DISEASE
     Dosage: 160 MG (BASELINE)/80 MG (WEEK 2)
     Route: 058
     Dates: start: 20090806
  3. FOLIC ACID [Concomitant]
     Indication: MEDICAL DIET
     Dates: start: 20090427
  4. SYMAX [Concomitant]
     Indication: ABDOMINAL PAIN
     Dates: start: 20090903
  5. PENTASA [Concomitant]
     Dates: start: 20090903
  6. PENTASA [Concomitant]
     Indication: CROHN'S DISEASE
     Dates: start: 20090608, end: 20090903
  7. PRILOSEC [Concomitant]
     Indication: GASTROOESOPHAGEAL REFLUX DISEASE
     Dates: start: 20090903
  8. MULTI-VITAMIN [Concomitant]
     Indication: MEDICAL DIET
     Dosage: AS DIRECTED
     Dates: start: 20090903

REACTIONS (3)
  - DEATH [None]
  - CROHN'S DISEASE [None]
  - HEPATITIS C [None]
